FAERS Safety Report 9602730 (Version 1)
Quarter: 2013Q4

REPORT INFORMATION
  Report Type: Spontaneous
  Country: FR (occurrence: FR)
  Receive Date: 20131007
  Receipt Date: 20131007
  Transmission Date: 20140711
  Serious: Yes (Hospitalization)
  Sender: FDA-Public Use
  Company Number: FR-PFIZER INC-2013283038

PATIENT
  Age: 37 Year
  Sex: Male

DRUGS (5)
  1. FELDENE [Suspect]
     Indication: BACK PAIN
     Dosage: 20 MG, 1X/DAY (AT NOON)
     Route: 048
     Dates: start: 20130813, end: 20130821
  2. VALIUM [Suspect]
     Indication: BACK PAIN
     Dosage: 10 MG, 3X/DAY
     Route: 048
     Dates: start: 20130813, end: 20130821
  3. AZILECT [Concomitant]
     Indication: PARKINSON^S DISEASE
     Dosage: UNK
     Route: 048
  4. CARBIDOPA [Concomitant]
     Indication: PARKINSON^S DISEASE
     Dosage: UNK
     Route: 048
  5. LEVODOPA [Concomitant]
     Indication: PARKINSON^S DISEASE
     Dosage: UNK
     Route: 048

REACTIONS (1)
  - Neuromuscular blockade [Recovered/Resolved]
